FAERS Safety Report 13126104 (Version 3)
Quarter: 2017Q1

REPORT INFORMATION
  Report Type: Spontaneous
  Country: DK (occurrence: DK)
  Receive Date: 20170118
  Receipt Date: 20170130
  Transmission Date: 20170428
  Serious: Yes (Death, Other)
  Sender: FDA-Public Use
  Company Number: DK-PFIZER INC-2017017732

PATIENT
  Age: 63 Year
  Sex: Male

DRUGS (8)
  1. PANTOPRAZOLE [Concomitant]
     Active Substance: PANTOPRAZOLE SODIUM
     Indication: PROSTATE CANCER
     Dosage: 40 MG, 1X/DAY
  2. TRIPTORELIN [Concomitant]
     Active Substance: TRIPTORELIN
     Indication: TRANSIENT ISCHAEMIC ATTACK
     Dosage: 22.5 MG, (EVERY SIX MONTHS)
     Route: 058
  3. DENOSUMAB [Concomitant]
     Active Substance: DENOSUMAB
     Indication: TRANSIENT ISCHAEMIC ATTACK
     Dosage: 120 MG, (EVERY FOUR WEEKS)
     Route: 058
  4. PREDNISOLONE. [Suspect]
     Active Substance: PREDNISOLONE
     Indication: PROSTATE CANCER
     Dosage: 5 MG, 2X/DAY
  5. DOCETAXEL. [Suspect]
     Active Substance: DOCETAXEL
     Indication: PROSTATE CANCER
     Dosage: 75 MG/M2, EVERY 3 WEEKS
  6. ACETYLSALICYLIC ACID [Concomitant]
     Active Substance: ASPIRIN
     Indication: TRANSIENT ISCHAEMIC ATTACK
     Dosage: 75 MG, DAILY
  7. ANTIANDROGENS [Concomitant]
     Active Substance: UNSPECIFIED INGREDIENT
     Indication: PROSTATE CANCER
  8. IBUPROFEN. [Concomitant]
     Active Substance: IBUPROFEN
     Indication: TRANSIENT ISCHAEMIC ATTACK
     Dosage: 600 MG, 3X/DAY

REACTIONS (1)
  - Neutropenic colitis [Fatal]
